FAERS Safety Report 13467280 (Version 1)
Quarter: 2017Q2

REPORT INFORMATION
  Report Type: Spontaneous
  Country: US (occurrence: US)
  Receive Date: 20170420
  Receipt Date: 20170420
  Transmission Date: 20170830
  Serious: No
  Sender: FDA-Public Use
  Company Number: None

PATIENT
  Age: 68 Year
  Sex: Female
  Weight: 94.84 kg

DRUGS (1)
  1. FLOUROURACIL [Suspect]
     Active Substance: FLUOROURACIL
     Indication: CHOLANGIOCARCINOMA
     Dosage: 4,260 MG EVERY 46 HOURS CONTINUOUS IV INFUSION VIA PUMP
     Dates: start: 20170119, end: 20170121

REACTIONS (7)
  - Device connection issue [None]
  - Vomiting [None]
  - Infusion site extravasation [None]
  - Asthenia [None]
  - Fatigue [None]
  - Dizziness [None]
  - Infusion site oedema [None]

NARRATIVE: CASE EVENT DATE: 20170121
